FAERS Safety Report 4982422-3 (Version None)
Quarter: 2006Q2

REPORT INFORMATION
  Report Type: 
  Country: None (occurrence: None)
  Receive Date: 20060419
  Receipt Date: 20060405
  Transmission Date: 20061013
  Serious: Yes (Hospitalization)
  Sender: FDA-Public Use
  Company Number: 2006PV011509

PATIENT
  Age: 68 Year
  Sex: Male

DRUGS (7)
  1. BYETTA [Suspect]
     Indication: DIABETES MELLITUS NON-INSULIN-DEPENDENT
     Dosage: 5 MCG; BID; SC;  5 MCG; BID; SC
     Route: 058
     Dates: start: 20051205, end: 20060228
  2. BYETTA [Suspect]
     Indication: DIABETES MELLITUS NON-INSULIN-DEPENDENT
     Dosage: 5 MCG; BID; SC;  5 MCG; BID; SC
     Route: 058
     Dates: start: 20060301
  3. METFORMIN [Concomitant]
  4. GLYBURIDE [Concomitant]
  5. CYMBALTA [Concomitant]
  6. ALLOPURINOL [Concomitant]
  7. LEVOTHROID [Concomitant]

REACTIONS (5)
  - COLON CANCER [None]
  - DISEASE PROGRESSION [None]
  - LOWER GASTROINTESTINAL HAEMORRHAGE [None]
  - METASTASES TO LIVER [None]
  - PAIN [None]
